FAERS Safety Report 23800208 (Version 1)
Quarter: 2024Q2

REPORT INFORMATION
  Report Type: Spontaneous
  Country: US (occurrence: US)
  Receive Date: 20240430
  Receipt Date: 20240430
  Transmission Date: 20240716
  Serious: No
  Sender: FDA-Public Use
  Company Number: US-002147023-NVSC2024US090415

PATIENT
  Age: 39 Year
  Sex: Female

DRUGS (1)
  1. KISQALI [Suspect]
     Active Substance: RIBOCICLIB
     Indication: Hormone receptor positive HER2 negative breast cancer
     Dosage: 40 MG (RIBOCICLIB +AI/GOSERILIN X21 DAYS (1 CYCLE)
     Route: 065
     Dates: start: 20240401, end: 20240425

REACTIONS (1)
  - Transaminases increased [Unknown]
